FAERS Safety Report 15982701 (Version 1)
Quarter: 2019Q1

REPORT INFORMATION
  Report Type: Spontaneous
  Country: FR (occurrence: FR)
  Receive Date: 20190219
  Receipt Date: 20190219
  Transmission Date: 20190418
  Serious: Yes (Other)
  Sender: FDA-Public Use
  Company Number: FR-MYLANLABS-2019M1015319

PATIENT
  Age: 58 Year
  Sex: Male
  Weight: 86 kg

DRUGS (2)
  1. BUPIVACAINE MYLAN 20 MG/4 ML, SOLUTION INJECTABLE [Suspect]
     Active Substance: BUPIVACAINE
     Indication: SPINAL ANAESTHESIA
     Dosage: 2 MILLILITER
     Route: 037
     Dates: start: 20190204, end: 20190204
  2. SUFENTANIL [Concomitant]
     Active Substance: SUFENTANIL

REACTIONS (1)
  - Drug ineffective [Unknown]

NARRATIVE: CASE EVENT DATE: 20190204
